FAERS Safety Report 13895576 (Version 2)
Quarter: 2017Q4

REPORT INFORMATION
  Report Type: Spontaneous
  Country: US (occurrence: US)
  Receive Date: 20170823
  Receipt Date: 20171003
  Transmission Date: 20180320
  Serious: No
  Sender: FDA-Public Use
  Company Number: US-PFIZER INC-2017360838

PATIENT
  Age: 69 Year
  Sex: Female
  Weight: 61.23 kg

DRUGS (21)
  1. CALCIUM [Concomitant]
     Active Substance: CALCIUM
     Indication: TOOTH DISORDER
  2. CALCIUM + VITAMIN D3 [Concomitant]
     Active Substance: CALCIUM CARBONATE\CHOLECALCIFEROL
     Dosage: UNK
     Dates: start: 201504
  3. IBRANCE [Suspect]
     Active Substance: PALBOCICLIB
     Indication: BREAST CANCER METASTATIC
     Dosage: 125 MG, ONCE A DAY, FOR 21 DAYS ON, AND 7 DAYS OFF
     Dates: start: 201508
  4. LETROZOLE. [Concomitant]
     Active Substance: LETROZOLE
     Dosage: 2.5 MG, 1X/DAY
     Dates: start: 201505
  5. COQ 10 [Concomitant]
     Active Substance: UBIDECARENONE
     Dosage: 200 MG, DAILY
     Dates: start: 2004
  6. VITAMIN B COMPLEX [Concomitant]
     Active Substance: CYANOCOBALAMIN\DEXPANTHENOL\NIACINAMIDE\PYRIDOXINE HYDROCHLORIDE\RIBOFLAVIN 5^-PHOSPHATE SODIUM\THIAMINE HYDROCHLORIDE\VITAMIN B COMPLEX
     Dosage: TAKES ON OCCASION, NOT EVERY DAY
  7. VITAMIN C [Concomitant]
     Active Substance: ASCORBIC ACID
     Indication: BONE DISORDER
     Dosage: 500MG, ONE CAPSULE EVERY DAY
  8. VITAMIN C [Concomitant]
     Active Substance: ASCORBIC ACID
     Indication: SUPPLEMENTATION THERAPY
     Dosage: 500 MG, UNK
     Dates: start: 2004
  9. CALCIUM [Concomitant]
     Active Substance: CALCIUM
     Indication: BONE DISORDER
     Dosage: 1000 MG (TWO OF 500 MG), EVERYDAY (DAILY)
  10. LETROZOLE. [Concomitant]
     Active Substance: LETROZOLE
     Indication: BREAST CANCER
     Dosage: 2.5 MG, DAILY
     Dates: start: 2015
  11. ASPIRIN /00002701/ [Concomitant]
     Active Substance: ASPIRIN
     Indication: CARDIAC DISORDER
     Dosage: 81 MG, ALTERNATE DAY
  12. CALCIUM [Concomitant]
     Active Substance: CALCIUM
     Indication: ARTHROPATHY
  13. MEGARED JOINT CARE [Concomitant]
     Dosage: UNK
     Dates: start: 201609
  14. IBRANCE [Suspect]
     Active Substance: PALBOCICLIB
     Dosage: 100 MG, UNK
  15. CRESTOR [Concomitant]
     Active Substance: ROSUVASTATIN CALCIUM
     Indication: BLOOD CHOLESTEROL ABNORMAL
     Dosage: 5 MG, ALTERNATE DAY
  16. JOINTCARE [Concomitant]
     Indication: ARTHRALGIA
     Dosage: 1 SMALL SOFTGEL, UNK
  17. JOINTCARE [Concomitant]
     Indication: VITAMIN SUPPLEMENTATION
  18. IBRANCE [Suspect]
     Active Substance: PALBOCICLIB
     Dosage: 125 MG, UNK
  19. CRESTOR [Concomitant]
     Active Substance: ROSUVASTATIN CALCIUM
     Indication: BLOOD CHOLESTEROL INCREASED
     Dosage: 2.5 MG, UNK
     Dates: start: 201504
  20. ASPIRIN /00002701/ [Concomitant]
     Active Substance: ASPIRIN
     Indication: BLOOD CHOLESTEROL ABNORMAL
  21. COQ 10 [Concomitant]
     Active Substance: UBIDECARENONE
     Indication: ASTHENIA
     Dosage: 200 MG, DAILY (200MG TAKE EVERY DAY)
     Dates: start: 2003

REACTIONS (13)
  - Paraesthesia [Not Recovered/Not Resolved]
  - Skin discolouration [Unknown]
  - Skin disorder [Unknown]
  - Pain [Unknown]
  - Alopecia [Unknown]
  - Hypoaesthesia [Not Recovered/Not Resolved]
  - Fatigue [Unknown]
  - Stomatitis [Unknown]
  - Myalgia [Unknown]
  - Temperature intolerance [Unknown]
  - Dry skin [Not Recovered/Not Resolved]
  - Hair texture abnormal [Not Recovered/Not Resolved]
  - Arthralgia [Unknown]

NARRATIVE: CASE EVENT DATE: 2016
